FAERS Safety Report 14212659 (Version 5)
Quarter: 2020Q1

REPORT INFORMATION
  Report Type: Report from Study
  Country: None (occurrence: IL)
  Receive Date: 20171121
  Receipt Date: 20200102
  Transmission Date: 20200409
  Serious: Yes (Hospitalization, Other)
  Sender: FDA-Public Use
  Company Number: IL-ABBVIE-17P-082-2042315-00

PATIENT
  Sex: Female

DRUGS (2)
  1. DUODOPA [Suspect]
     Active Substance: CARBIDOPA\LEVODOPA
     Indication: PARKINSON^S DISEASE
     Dosage: CURRENT MORNING DOSE- 10ML, CURRENT FIXED RATE- 2.8 ML/ HOUR, CURRENT EXTRA DOSE-1.5 ML
     Route: 050
     Dates: start: 20131205
  2. DUODOPA [Suspect]
     Active Substance: CARBIDOPA\LEVODOPA
     Dosage: CURRENT MORNING DOSE- 9.5 ML, CURRENT FIXED RATE- 2.2 ML/ HOUR, CURRENT EXTRA DOSE- 1.3 ML
     Route: 050
     Dates: start: 20131204

REACTIONS (7)
  - Breast cancer stage IV [Fatal]
  - On and off phenomenon [Unknown]
  - Metastases to lung [Not Recovered/Not Resolved]
  - White blood cell count decreased [Not Recovered/Not Resolved]
  - Asthenia [Not Recovered/Not Resolved]
  - Intentional product misuse [Unknown]
  - Dyskinesia [Unknown]
